FAERS Safety Report 9573212 (Version 1)
Quarter: 2013Q3

REPORT INFORMATION
  Report Type: Spontaneous
  Country: US (occurrence: None)
  Receive Date: 20130930
  Receipt Date: 20130930
  Transmission Date: 20140515
  Serious: Yes (Other)
  Sender: FDA-Public Use
  Company Number: None

PATIENT
  Age: 26 Year
  Sex: Male
  Weight: 77.11 kg

DRUGS (4)
  1. NAPROXEN [Suspect]
     Indication: ARTHRALGIA
     Dosage: 1 PILL
     Route: 048
     Dates: start: 20130826, end: 20130906
  2. NAPROXEN [Suspect]
     Indication: INTERVERTEBRAL DISC PROTRUSION
     Dosage: 1 PILL
     Route: 048
     Dates: start: 20130826, end: 20130906
  3. NAPROXEN [Suspect]
     Indication: RADICULOPATHY
     Dosage: 1 PILL
     Route: 048
     Dates: start: 20130826, end: 20130906
  4. CYCLOBENZAPRINE [Concomitant]

REACTIONS (1)
  - Muscle twitching [None]
